FAERS Safety Report 10335568 (Version 2)
Quarter: 2014Q3

REPORT INFORMATION
  Report Type: Spontaneous
  Country: US (occurrence: US)
  Receive Date: 20140723
  Receipt Date: 20140723
  Transmission Date: 20150326
  Serious: No
  Sender: FDA-Public Use
  Company Number: US-UNITED THERAPEUTICS-UTC-046837

PATIENT
  Age: 57 Year
  Sex: Female
  Weight: 61.68 kg

DRUGS (4)
  1. REVATIO [Concomitant]
     Active Substance: SILDENAFIL CITRATE
  2. LETAIRIS [Suspect]
     Active Substance: AMBRISENTAN
     Route: 065
     Dates: start: 20121211
  3. TYVASO [Suspect]
     Active Substance: TREPROSTINIL
     Dosage: 18-54 MICROGRAMS
     Dates: start: 20140317
  4. TYVASO [Suspect]
     Active Substance: TREPROSTINIL
     Dosage: 36 MICROGRAM
     Dates: start: 20140326

REACTIONS (4)
  - Cough [Unknown]
  - Dyspnoea [Unknown]
  - Fatigue [Unknown]
  - Wheezing [Unknown]

NARRATIVE: CASE EVENT DATE: 201403
